FAERS Safety Report 6178466-9 (Version None)
Quarter: 2009Q2

REPORT INFORMATION
  Report Type: 
  Country: None (occurrence: None)
  Receive Date: 20090430
  Receipt Date: 20090420
  Transmission Date: 20091009
  Serious: Yes (Hospitalization)
  Sender: FDA-Public Use
  Company Number: TCI2009A01253

PATIENT
  Age: 68 Year
  Sex: Female

DRUGS (4)
  1. ACTOS [Suspect]
     Indication: DIABETES MELLITUS
     Dosage: 15 MG (15 MG, 1 IN 1 D) PER ORAL
     Route: 048
     Dates: start: 20080221, end: 20090325
  2. CANDESARTAN CILEXETIL [Suspect]
     Indication: HYPERTENSION
     Dosage: 8 MG (8 MG, 1 IN 1 D) PER ORAL
     Route: 048
     Dates: start: 20090406, end: 20090410
  3. NORVASC [Suspect]
     Indication: HYPERTENSION
     Dosage: 5 MG (5 MG, 1 IN 1 D) PER ORAL
     Route: 048
     Dates: start: 19981130, end: 20090325
  4. ALLELOCK (OLOPATADINE HYDROCHLORIDE) [Concomitant]

REACTIONS (2)
  - ANGIOEDEMA [None]
  - PHOTOSENSITIVITY REACTION [None]
